FAERS Safety Report 6332653-5 (Version None)
Quarter: 2009Q3

REPORT INFORMATION
  Report Type: 
  Country: None (occurrence: None)
  Receive Date: 20090828
  Receipt Date: 20090820
  Transmission Date: 20100115
  Serious: Yes (Hospitalization)
  Sender: FDA-Public Use
  Company Number: CA-NOVOPROD-289773

PATIENT
  Sex: Male

DRUGS (12)
  1. GLUCONORM [Suspect]
     Indication: TYPE 2 DIABETES MELLITUS
     Dosage: 1 MG, TID
     Route: 048
     Dates: start: 20050425, end: 20050725
  2. POTASSIUM CHLORIDE [Concomitant]
     Dosage: 2 TAB, UNK
     Dates: end: 20050725
  3. ALDACTONE [Concomitant]
     Dosage: 25 UNK, BID
     Dates: end: 20061020
  4. METFORMIN HCL [Concomitant]
  5. WARFARIN [Concomitant]
  6. LIPITOR [Concomitant]
     Dosage: 10 UNK, UNK
  7. PALAFER [Concomitant]
  8. CELEXA [Concomitant]
  9. SYNTHROID [Concomitant]
  10. RISPERDAL [Concomitant]
  11. LASIX [Concomitant]
     Dosage: 80 UNK, BID
  12. HYDROMORPHONE HCL [Concomitant]

REACTIONS (2)
  - BLOOD CREATININE INCREASED [None]
  - HYPERKALAEMIA [None]
